FAERS Safety Report 5118189-8 (Version None)
Quarter: 2006Q3

REPORT INFORMATION
  Report Type: 
  Country: None (occurrence: None)
  Receive Date: 20060928
  Receipt Date: 20060928
  Transmission Date: 20061208
  Serious: Yes (Hospitalization, Other)
  Sender: FDA-Public Use
  Company Number: None

PATIENT
  Age: 52 Year
  Sex: Male
  Weight: 79.3795 kg

DRUGS (6)
  1. EMTRICITABINE 200 GILEAD [Suspect]
     Indication: HIV INFECTION
     Dosage: 200 DAILY PO
     Route: 048
     Dates: start: 20060623
  2. TENOFOVIR 300 [Suspect]
     Indication: HIV INFECTION
     Dosage: 300 DAILY PO
     Route: 048
  3. ATAZINAVIR 150MG BMS [Suspect]
     Indication: HIV INFECTION
     Dosage: 300MG DAILY PO
     Route: 048
     Dates: start: 20060623
  4. RITONAVIR [Concomitant]
  5. BACTRIM [Concomitant]
  6. IBUPROFEN [Concomitant]

REACTIONS (4)
  - BACK PAIN [None]
  - GUILLAIN-BARRE SYNDROME [None]
  - IMMUNE RECONSTITUTION SYNDROME [None]
  - PAIN [None]
